APPROVED DRUG PRODUCT: HYDRALAZINE HYDROCHLORIDE
Active Ingredient: HYDRALAZINE HYDROCHLORIDE
Strength: 10MG
Dosage Form/Route: TABLET;ORAL
Application: A089097 | Product #001 | TE Code: AA
Applicant: PLIVA INC
Approved: Dec 18, 1985 | RLD: No | RS: Yes | Type: RX